FAERS Safety Report 10924723 (Version 2)
Quarter: 2015Q2

REPORT INFORMATION
  Report Type: Spontaneous
  Country: US (occurrence: US)
  Receive Date: 20150318
  Receipt Date: 20150524
  Transmission Date: 20150821
  Serious: No
  Sender: FDA-Public Use
  Company Number: US-JNJFOC-20130513766

PATIENT
  Sex: Male

DRUGS (3)
  1. NIZORAL A-D [Suspect]
     Active Substance: KETOCONAZOLE
     Route: 061
  2. DERMAREST ECZEMA MEDICATED [Suspect]
     Active Substance: HYDROCORTISONE
     Indication: PSORIASIS
     Route: 061
  3. NIZORAL A-D [Suspect]
     Active Substance: KETOCONAZOLE
     Indication: PSORIASIS
     Route: 061

REACTIONS (1)
  - Product use issue [Unknown]
